FAERS Safety Report 10230624 (Version 1)
Quarter: 2014Q2

REPORT INFORMATION
  Report Type: Spontaneous
  Country: US (occurrence: US)
  Receive Date: 20140611
  Receipt Date: 20140611
  Transmission Date: 20141212
  Serious: Yes (Other)
  Sender: FDA-Public Use
  Company Number: US-PFIZER INC-2014157363

PATIENT
  Age: 42 Year
  Sex: Female
  Weight: 63.49 kg

DRUGS (1)
  1. DOXORUBICIN HCL [Suspect]
     Indication: BREAST CANCER FEMALE
     Dosage: UNK
     Route: 042

REACTIONS (2)
  - Cognitive disorder [Unknown]
  - Confusional state [Unknown]
